FAERS Safety Report 5731005-6 (Version None)
Quarter: 2008Q2

REPORT INFORMATION
  Report Type: 
  Country: None (occurrence: None)
  Receive Date: 20080430
  Receipt Date: 20080108
  Transmission Date: 20081010
  Serious: No
  Sender: FDA-Public Use
  Company Number: 2008PV033918

PATIENT
  Age: 57 Year
  Sex: Female

DRUGS (7)
  1. SYMLIN [Suspect]
     Indication: GLUCOSE TOLERANCE IMPAIRED
     Dosage: 120 MCG;TID;SC ; 90 MCG;SC ; 60 MCG;SC ; 30 MCG;SC ; SC
     Route: 058
     Dates: start: 20050101, end: 20060101
  2. SYMLIN [Suspect]
     Indication: GLUCOSE TOLERANCE IMPAIRED
     Dosage: 120 MCG;TID;SC ; 90 MCG;SC ; 60 MCG;SC ; 30 MCG;SC ; SC
     Route: 058
     Dates: start: 20070101, end: 20070101
  3. SYMLIN [Suspect]
     Indication: GLUCOSE TOLERANCE IMPAIRED
     Dosage: 120 MCG;TID;SC ; 90 MCG;SC ; 60 MCG;SC ; 30 MCG;SC ; SC
     Route: 058
     Dates: start: 20070101, end: 20070101
  4. SYMLIN [Suspect]
     Indication: GLUCOSE TOLERANCE IMPAIRED
     Dosage: 120 MCG;TID;SC ; 90 MCG;SC ; 60 MCG;SC ; 30 MCG;SC ; SC
     Route: 058
     Dates: start: 20070101, end: 20070101
  5. SYMLIN [Suspect]
     Indication: GLUCOSE TOLERANCE IMPAIRED
     Dosage: 120 MCG;TID;SC ; 90 MCG;SC ; 60 MCG;SC ; 30 MCG;SC ; SC
     Route: 058
     Dates: start: 20070101
  6. BYETTA [Concomitant]
  7. GLUMETZA [Concomitant]

REACTIONS (3)
  - BLOOD GLUCOSE INCREASED [None]
  - DIARRHOEA [None]
  - NAUSEA [None]
